FAERS Safety Report 4942905-9 (Version None)
Quarter: 2006Q1

REPORT INFORMATION
  Report Type: 
  Country: None (occurrence: None)
  Receive Date: 20060309
  Receipt Date: 20060222
  Transmission Date: 20060701
  Serious: Yes (Congenital Anomaly)
  Sender: FDA-Public Use
  Company Number: S05-FRA-04001-01

PATIENT
  Age: 31 Year
  Sex: Female

DRUGS (2)
  1. CITALOPRAM HYDROBROMIDE [Suspect]
     Dates: end: 20050315
  2. HYPNOTICS AND SEDATIVES (NOS) [Concomitant]

REACTIONS (9)
  - ABORTION INDUCED [None]
  - CLEFT LIP AND PALATE [None]
  - CONGENITAL CENTRAL NERVOUS SYSTEM ANOMALY [None]
  - CONGENITAL HYDROCEPHALUS [None]
  - DRUG EXPOSURE BEFORE PREGNANCY [None]
  - HYPOXIA [None]
  - MACROCEPHALY [None]
  - PLACENTAL DISORDER [None]
  - PREGNANCY [None]
